FAERS Safety Report 4567768-5 (Version None)
Quarter: 2005Q1

REPORT INFORMATION
  Report Type: 
  Country: None (occurrence: None)
  Receive Date: 20050125
  Receipt Date: 20050125
  Transmission Date: 20050727
  Serious: Yes (Other)
  Sender: FDA-Public Use
  Company Number: None

PATIENT
  Age: 4 Year
  Sex: Female

DRUGS (1)
  1. PHILLIPS' MILK OF MAGNESIA SALINE LAXATIVE + ANTACID [Suspect]
     Indication: CONSTIPATION
     Dosage: GAVE 1 DOSE USING DOSING CUP THAT CAME WITH PRODUCT
     Dates: start: 20040601

REACTIONS (4)
  - ABDOMINAL PAIN UPPER [None]
  - ACCIDENTAL OVERDOSE [None]
  - MEDICATION ERROR [None]
  - PHARMACEUTICAL PRODUCT COMPLAINT [None]
